FAERS Safety Report 7992593-2 (Version None)
Quarter: 2011Q4

REPORT INFORMATION
  Report Type: 
  Country: None (occurrence: None)
  Receive Date: 20111219
  Receipt Date: 20111213
  Transmission Date: 20120403
  Serious: Yes (Life-Threatening, Other)
  Sender: FDA-Public Use
  Company Number: FR-PFIZER INC-2011303154

PATIENT
  Age: 62 Year
  Sex: Female

DRUGS (11)
  1. CLONAZEPAM [Concomitant]
     Dosage: 5 DF, 5 DROPS IN THE EVENING
  2. ETOPOSIDE [Suspect]
     Dosage: 172 MG, 2X/DAY
     Route: 042
     Dates: start: 20110108, end: 20110111
  3. NEXIUM [Concomitant]
     Dosage: 20 MG, IN THE EVENING
     Dates: start: 20110101
  4. NEULASTA [Concomitant]
     Dosage: ON DAY 5 AFTER TRANSPLANTATION
     Dates: start: 20110101
  5. BICNU [Suspect]
     Dosage: 516 MG, ONE SINGLE DOSE
     Route: 042
     Dates: start: 20110107, end: 20110107
  6. NEORECORMON [Concomitant]
     Dosage: 30000 IU, ONCE/WEEK, AS OF DAY 8 POST-TRANSPLANTATION
     Dates: start: 20110101
  7. CYTARABINE [Suspect]
     Dosage: 172 MG/DAY
     Route: 042
     Dates: start: 20110108, end: 20110111
  8. DOXORUBICIN HCL [Suspect]
     Dosage: 8 CYCLES
     Route: 042
     Dates: start: 20090501, end: 20091001
  9. ALKERAN [Suspect]
     Dosage: 240 MG, ONE SINGLE DOSE
     Route: 042
     Dates: start: 20110112, end: 20110112
  10. VALACYCLOVIR HYDROCHLORIDE [Concomitant]
     Dosage: 500 MG, 2X/DAY
     Dates: start: 20110101
  11. FLUCONAZOLE [Concomitant]
     Dosage: 200 MG DAILY, IN THE MORNING
     Route: 048
     Dates: start: 20110101

REACTIONS (4)
  - ACUTE PULMONARY OEDEMA [None]
  - CARDIAC FAILURE ACUTE [None]
  - FEBRILE BONE MARROW APLASIA [None]
  - EJECTION FRACTION DECREASED [None]
